FAERS Safety Report 9426736 (Version 1)
Quarter: 2013Q3

REPORT INFORMATION
  Report Type: Spontaneous
  Country: US (occurrence: US)
  Receive Date: 20130730
  Receipt Date: 20130730
  Transmission Date: 20140515
  Serious: Yes (Other)
  Sender: FDA-Public Use
  Company Number: US-SANOFI-AVENTIS-2012SA087922

PATIENT
  Sex: Male

DRUGS (2)
  1. AMBIEN [Suspect]
     Route: 048
     Dates: start: 201206
  2. VIAGRA [Suspect]
     Route: 048

REACTIONS (4)
  - Fall [Unknown]
  - Tooth fracture [Unknown]
  - Tooth disorder [Unknown]
  - Somnambulism [Unknown]
